FAERS Safety Report 21707674 (Version 1)
Quarter: 2022Q4

REPORT INFORMATION
  Report Type: Other
  Country: US (occurrence: US)
  Receive Date: 20221209
  Receipt Date: 20221209
  Transmission Date: 20230113
  Serious: Yes (Other)
  Sender: FDA-Public Use
  Company Number: US-ETHYPHARM-202001237

PATIENT
  Age: 49 Year
  Sex: Male

DRUGS (1)
  1. BUPRENORPHINE [Suspect]
     Active Substance: BUPRENORPHINE
     Indication: Suicidal ideation
     Route: 065

REACTIONS (7)
  - Off label use [Unknown]
  - Drug ineffective [Unknown]
  - Nausea [Unknown]
  - Urinary retention [Unknown]
  - Dysphoria [Unknown]
  - Drug intolerance [Unknown]
  - Drug ineffective for unapproved indication [Unknown]
